FAERS Safety Report 16427787 (Version 2)
Quarter: 2019Q3

REPORT INFORMATION
  Report Type: Spontaneous
  Country: JP (occurrence: JP)
  Receive Date: 20190613
  Receipt Date: 20190719
  Transmission Date: 20191004
  Serious: Yes (Death)
  Sender: FDA-Public Use
  Company Number: JP-NAPPMUNDI-GBR-2019-0067288

PATIENT
  Age: 69 Year
  Sex: Female

DRUGS (14)
  1. NOVAMIN                            /00013301/ [Concomitant]
     Active Substance: PROCHLORPERAZINE
     Dosage: UNK
     Route: 048
     Dates: start: 20181204
  2. MS CONTIN [Suspect]
     Active Substance: MORPHINE SULFATE
     Indication: BREAST CANCER
     Dosage: 20 MG, DAILY
     Route: 048
     Dates: start: 20181204, end: 20190107
  3. ABRAXANE [Concomitant]
     Active Substance: PACLITAXEL
     Dosage: UNK
     Dates: start: 20180822
  4. CYMBALTA [Suspect]
     Active Substance: DULOXETINE HYDROCHLORIDE
     Dosage: 20 MG, DAILY
     Route: 048
     Dates: start: 20181211, end: 20190107
  5. OPSO [Suspect]
     Active Substance: MORPHINE HYDROCHLORIDE
     Indication: DYSPNOEA
  6. DAIPHEN [Concomitant]
     Active Substance: SULFAMETHOXAZOLE\TRIMETHOPRIM
     Indication: INTERSTITIAL LUNG DISEASE
     Dosage: 1 DF, DAILY
     Route: 048
     Dates: start: 20160819, end: 20190107
  7. ATORVASTATIN CALCIUM. [Concomitant]
     Active Substance: ATORVASTATIN CALCIUM
     Indication: INTERSTITIAL LUNG DISEASE
     Dosage: 10 MG, DAILY
     Route: 048
     Dates: start: 20160819, end: 20190107
  8. ABRAXANE [Concomitant]
     Active Substance: PACLITAXEL
     Indication: BREAST CANCER
     Dosage: UNK
     Dates: start: 20181031
  9. DOCETAXEL. [Concomitant]
     Active Substance: DOCETAXEL
     Indication: BREAST CANCER
     Dosage: UNK
  10. POLAPREZINC [Concomitant]
     Active Substance: POLAPREZINC
     Indication: INTERSTITIAL LUNG DISEASE
     Dosage: 150 MG, DAILY
     Route: 048
     Dates: start: 20160113, end: 20190107
  11. OPSO [Suspect]
     Active Substance: MORPHINE HYDROCHLORIDE
     Indication: BREAST CANCER
     Dosage: UNK, PRN
     Route: 048
     Dates: start: 20181129, end: 20190107
  12. CYMBALTA [Suspect]
     Active Substance: DULOXETINE HYDROCHLORIDE
     Indication: NEUROPATHY PERIPHERAL
     Dosage: UNK
     Route: 048
     Dates: start: 20190121, end: 20190131
  13. PREDONINE [Suspect]
     Active Substance: PREDNISOLONE
     Indication: INTERSTITIAL LUNG DISEASE
     Dosage: 12.5 MG, DAILY
     Route: 048
     Dates: start: 20160624, end: 20190107
  14. LANSOPRAZOLE. [Concomitant]
     Active Substance: LANSOPRAZOLE
     Indication: INTERSTITIAL LUNG DISEASE
     Dosage: 15 MG, DAILY
     Route: 048
     Dates: start: 20160113, end: 20190107

REACTIONS (3)
  - Breast cancer [Fatal]
  - Tongue discolouration [Recovered/Resolved]
  - Nausea [Recovered/Resolved]

NARRATIVE: CASE EVENT DATE: 20181214
